FAERS Safety Report 22080876 (Version 1)
Quarter: 2023Q1

REPORT INFORMATION
  Report Type: Spontaneous
  Country: AU (occurrence: AU)
  Receive Date: 20230309
  Receipt Date: 20230309
  Transmission Date: 20230418
  Serious: Yes (Life-Threatening, Hospitalization)
  Sender: FDA-Public Use
  Company Number: AU-ELI_LILLY_AND_COMPANY-AU202303002827

PATIENT
  Age: 52 Year
  Sex: Female

DRUGS (4)
  1. FLUOXETINE HYDROCHLORIDE [Suspect]
     Active Substance: FLUOXETINE HYDROCHLORIDE
     Indication: Vulvovaginal candidiasis
     Dosage: UNK UNK, QOD
     Route: 065
     Dates: start: 2018
  2. PROZAC [Suspect]
     Active Substance: FLUOXETINE HYDROCHLORIDE
     Indication: Product used for unknown indication
     Dosage: 60 MG, DAILY
     Route: 065
  3. ERYTHROMYCIN [Suspect]
     Active Substance: ERYTHROMYCIN
     Indication: Product used for unknown indication
     Dosage: UNK UNK, UNKNOWN
     Route: 065
  4. FLUCONAZOLE [Suspect]
     Active Substance: FLUCONAZOLE
     Indication: Vulvovaginal candidiasis
     Dosage: 200 MG, WEEKLY (1/W)
     Route: 065
     Dates: start: 2019

REACTIONS (8)
  - Cardiac arrest [Not Recovered/Not Resolved]
  - Stress cardiomyopathy [Recovered/Resolved]
  - Electrocardiogram QT prolonged [Unknown]
  - Fatigue [Recovered/Resolved]
  - Palpitations [Recovered/Resolved]
  - Ear pain [Recovered/Resolved]
  - Inappropriate schedule of product administration [Unknown]
  - Off label use [Unknown]

NARRATIVE: CASE EVENT DATE: 20190101
